FAERS Safety Report 20957851 (Version 1)
Quarter: 2022Q2

REPORT INFORMATION
  Report Type: Spontaneous
  Country: GB (occurrence: GB)
  Receive Date: 20220614
  Receipt Date: 20220614
  Transmission Date: 20220721
  Serious: Yes (Other)
  Sender: FDA-Public Use
  Company Number: GB-VERTEX PHARMACEUTICALS-2022-008832

PATIENT
  Sex: Male

DRUGS (2)
  1. ELEXACAFTOR\IVACAFTOR\TEZACAFTOR [Suspect]
     Active Substance: ELEXACAFTOR\IVACAFTOR\TEZACAFTOR
     Indication: Cystic fibrosis
     Dosage: (75 MG IVA/50 MG TEZA/100 MG ELEXA), 1 TAB IN THE EVENING
     Route: 048
     Dates: start: 2020
  2. AZITHROMYCIN [Concomitant]
     Active Substance: AZITHROMYCIN

REACTIONS (5)
  - Surgery [Unknown]
  - Illness [Not Recovered/Not Resolved]
  - Vomiting [Not Recovered/Not Resolved]
  - Chest discomfort [Unknown]
  - Cough [Unknown]
